FAERS Safety Report 11288667 (Version 2)
Quarter: 2015Q3

REPORT INFORMATION
  Report Type: Spontaneous
  Country: IT (occurrence: IT)
  Receive Date: 20150721
  Receipt Date: 20150727
  Transmission Date: 20151125
  Serious: Yes (Hospitalization)
  Sender: FDA-Public Use
  Company Number: IT-PFIZER INC-2015240843

PATIENT
  Sex: Female

DRUGS (5)
  1. FLUOROURACILE [Suspect]
     Active Substance: FLUOROURACIL
  2. FOLIC ACID. [Suspect]
     Active Substance: FOLIC ACID
  3. IRINOTECAN HCL [Suspect]
     Active Substance: IRINOTECAN HYDROCHLORIDE
  4. OXALIPLATINO [Suspect]
     Active Substance: OXALIPLATIN
  5. BEVACIZUMAB [Suspect]
     Active Substance: BEVACIZUMAB

REACTIONS (1)
  - Intestinal perforation [Unknown]
